FAERS Safety Report 6207117-X (Version None)
Quarter: 2009Q2

REPORT INFORMATION
  Report Type: 
  Country: None (occurrence: None)
  Receive Date: 20090528
  Receipt Date: 20090121
  Transmission Date: 20091009
  Serious: Yes (Hospitalization)
  Sender: FDA-Public Use
  Company Number: FR-PFIZER INC-2009160218

PATIENT
  Age: 60 Year
  Sex: Female

DRUGS (4)
  1. SOLU-MEDROL [Suspect]
     Route: 042
  2. TAXOL [Suspect]
     Route: 042
     Dates: end: 20080827
  3. ONDANSETRON HCL [Suspect]
     Route: 042
     Dates: end: 20080827
  4. POLARAMINE [Suspect]
     Route: 042

REACTIONS (4)
  - DYSPNOEA [None]
  - ERYTHEMA [None]
  - HYPERSENSITIVITY [None]
  - OROPHARYNGEAL DISCOMFORT [None]
